FAERS Safety Report 10047166 (Version 2)
Quarter: 2014Q1

REPORT INFORMATION
  Report Type: Spontaneous
  Country: US (occurrence: US)
  Receive Date: 20140331
  Receipt Date: 20140331
  Transmission Date: 20141002
  Serious: No
  Sender: FDA-Public Use
  Company Number: US-MYLANLABS-2013S1014718

PATIENT
  Sex: Female

DRUGS (1)
  1. FENTANYL TRANSDERMAL SYSTEM [Suspect]
     Indication: PAIN
     Dosage: Q72HR
     Route: 062
     Dates: start: 20130618

REACTIONS (2)
  - Blood pressure increased [Not Recovered/Not Resolved]
  - Angina pectoris [Not Recovered/Not Resolved]
